FAERS Safety Report 6336195-2 (Version None)
Quarter: 2009Q3

REPORT INFORMATION
  Report Type: 
  Country: None (occurrence: None)
  Receive Date: 20090901
  Receipt Date: 20090828
  Transmission Date: 20100115
  Serious: Yes (Life-Threatening)
  Sender: FDA-Public Use
  Company Number: JP-ASTRAZENECA-2009AC01550

PATIENT
  Age: 90 Year
  Sex: Female
  Weight: 39 kg

DRUGS (2)
  1. TENORMIN [Suspect]
     Indication: ATRIAL FIBRILLATION
     Route: 048
     Dates: end: 20090512
  2. SUNRYTHM [Concomitant]
     Indication: ATRIAL FIBRILLATION
     Route: 048
     Dates: end: 20090512

REACTIONS (3)
  - ELECTROCARDIOGRAM QRS COMPLEX PROLONGED [None]
  - HYPOGLYCAEMIA [None]
  - SINUS ARREST [None]
